FAERS Safety Report 24737229 (Version 1)
Quarter: 2024Q4

REPORT INFORMATION
  Report Type: Spontaneous
  Country: US (occurrence: None)
  Receive Date: 20241213
  Receipt Date: 20241213
  Transmission Date: 20250114
  Serious: Yes (Hospitalization)
  Sender: Public
  Company Number: None

PATIENT
  Age: 62 Year
  Sex: Male
  Weight: 71 kg

DRUGS (1)
  1. HYDROXYZINE HYDROCHLORIDE [Suspect]
     Active Substance: HYDROXYZINE HYDROCHLORIDE
     Dosage: 1.00 MG AT BEDTIME ORAL?
     Route: 048

REACTIONS (8)
  - Haemolytic anaemia [None]
  - Rash [None]
  - Vomiting [None]
  - Asthenia [None]
  - Hallucination [None]
  - Contusion [None]
  - Jaundice [None]
  - Skin discolouration [None]

NARRATIVE: CASE EVENT DATE: 20240912
